FAERS Safety Report 9233649 (Version 1)
Quarter: 2013Q2

REPORT INFORMATION
  Report Type: Spontaneous
  Country: US (occurrence: US)
  Receive Date: 20130416
  Receipt Date: 20130416
  Transmission Date: 20140414
  Serious: No
  Sender: FDA-Public Use
  Company Number: US-BANPHARM-20130582

PATIENT
  Age: 53 Year
  Sex: Male
  Weight: 82.55 kg

DRUGS (6)
  1. ALEVE LIQUID GELS 220MG [Suspect]
     Dosage: 4 DF, TID,
     Route: 048
     Dates: start: 201201
  2. ALEVE [Suspect]
     Dosage: 4 DF, TID,
     Route: 048
     Dates: start: 201201
  3. HYDROCODONE [Concomitant]
  4. OXYCODONE [Concomitant]
  5. NAUSEA MEDICINE [Concomitant]
  6. MEDICINE FOR THROAT ULCERS [Concomitant]

REACTIONS (4)
  - Drug ineffective [Unknown]
  - Abdominal pain upper [Unknown]
  - Incorrect dose administered [Unknown]
  - Incorrect drug administration duration [Unknown]
